FAERS Safety Report 22784396 (Version 3)
Quarter: 2024Q2

REPORT INFORMATION
  Report Type: Report from Study
  Country: US (occurrence: US)
  Receive Date: 20230803
  Receipt Date: 20240408
  Transmission Date: 20240716
  Serious: Yes (Other)
  Sender: FDA-Public Use
  Company Number: US-ACADIA PHARMACEUTICALS INC.-ACA-2023-PIM-002900

PATIENT
  Sex: Male

DRUGS (43)
  1. NUPLAZID [Suspect]
     Active Substance: PIMAVANSERIN TARTRATE
     Indication: Parkinson^s disease psychosis
     Dosage: 34 MILLIGRAM, QD
     Route: 048
     Dates: start: 20230623
  2. NUPLAZID [Suspect]
     Active Substance: PIMAVANSERIN TARTRATE
     Indication: Parkinson^s disease
     Dosage: 34 MILLIGRAM, QD
     Route: 048
     Dates: start: 20240219
  3. ATENOLOL [Concomitant]
     Active Substance: ATENOLOL
     Dosage: 25 MILLIGRAM, 1/2 TABLET BY MOUTH DAILY
     Dates: start: 20231212
  4. QUETIAPINE FUMARATE [Concomitant]
     Active Substance: QUETIAPINE FUMARATE
     Dosage: 25 MILLIGRAM,1/2 IN MORNING, LUNCH, 2 TABS AT BEDTIME
     Dates: start: 20231227
  5. TAMSULOSIN [Concomitant]
     Active Substance: TAMSULOSIN
     Dosage: 0.4 MILLIGRAM, (2 CAPSULES BY MOUTH AT BEDTIME)
     Dates: start: 20240131
  6. DONEPEZIL [Concomitant]
     Active Substance: DONEPEZIL
     Dosage: 10 MILLIGRAM, BY MOUTH AT BEDTIME
     Dates: start: 20240214
  7. MAGNESIUM [Concomitant]
     Active Substance: MAGNESIUM
  8. KRILL OIL [Concomitant]
     Active Substance: DIETARY SUPPLEMENT\KRILL OIL
  9. PRAMIPEXOLE DIHYDROCHLORIDE [Concomitant]
     Active Substance: PRAMIPEXOLE DIHYDROCHLORIDE
     Dosage: 1 MILLIGRAM (1 TABLET BY MOUTH THREE TIMES DAILY)
     Dates: start: 20231011
  10. VITAMINS [Concomitant]
     Active Substance: VITAMINS
  11. SIMVASTATIN [Concomitant]
     Active Substance: SIMVASTATIN
     Dosage: 40 MILLIGRAM BY MOUTH ONCE DAILY
     Dates: start: 20240204
  12. EZETIMIBE [Concomitant]
     Active Substance: EZETIMIBE
     Dosage: 10 MILLIGRAM, DAILY
     Dates: start: 20240102
  13. ASCORBIC ACID\CRANBERRY [Concomitant]
     Active Substance: ASCORBIC ACID\CRANBERRY
  14. VITAMIN D3 [Concomitant]
     Active Substance: CHOLECALCIFEROL
  15. ZYRTEC [Concomitant]
     Active Substance: CETIRIZINE HYDROCHLORIDE
  16. DIVALPROEX SODIUM [Concomitant]
     Active Substance: DIVALPROEX SODIUM
     Dosage: 250 MILLIGRAM, EXTENDED RELEASE 24 HR, 2 TABLETS BY MOUTH AT BEDTIME
     Dates: start: 20240221
  17. COLACE [Concomitant]
     Active Substance: DOCUSATE SODIUM
     Dosage: 100 MILLIGRAM, ORALLY
     Dates: start: 20230215
  18. CARBIDOPA LEVODOPA [Concomitant]
     Active Substance: CARBIDOPA\LEVODOPA
     Dosage: 25 MG-100 MG (1 TABLET BY MOUTH FOUR TIMES A DAY AFTER MEALS)
     Dates: start: 20240215
  19. B12 ACTIVE [Concomitant]
  20. ASPIRIN [Concomitant]
     Active Substance: ASPIRIN
     Dosage: 81 MILLIGRAM, ORAL
     Dates: start: 20230215
  21. AZELASTINE [Concomitant]
     Active Substance: AZELASTINE\AZELASTINE HYDROCHLORIDE
     Dosage: 137 MICROGRAM, (0.1%) NASAL SPRAY AEROSOL, 1 SPRAY INTO EACH NORTRIL, ONCE A DAY
     Dates: start: 20240208
  22. AZELASTINE HYDROCHLORIDE\FLUTICASONE PROPIONATE [Concomitant]
     Active Substance: AZELASTINE HYDROCHLORIDE\FLUTICASONE PROPIONATE
     Dosage: 137MCG/50MCG (1 SPRAY TWICE A DAY)
     Dates: start: 20231016
  23. BUMETANIDE [Concomitant]
     Active Substance: BUMETANIDE
     Indication: Swelling
     Dosage: 1 MILLIGRAM (1 TABLET DAILY IF NEEDED)
     Route: 048
     Dates: start: 20240228
  24. CEPHALEXIN [Concomitant]
     Active Substance: CEPHALEXIN
     Dosage: 500 MILLIGRAM (1 TABLET BY MOUTH FOUR TIMES A DAY FOR 10 DAYS)
     Dates: start: 20230918
  25. CIPROFLOXACIN [Concomitant]
     Active Substance: CIPROFLOXACIN
     Dosage: 500 MILLIGRAM (1 TABLET BY MOUTH TWICE A DAY UNTIL FINISHED)
     Dates: start: 20240129
  26. DOXYCYCLINE [Concomitant]
     Active Substance: DOXYCYCLINE
     Dosage: 100 MILLIGRAM (1 TABLET BY MOUTH TWICE A DAY)
     Dates: start: 20240228
  27. DUTASTERIDE [Concomitant]
     Active Substance: DUTASTERIDE
     Dosage: 0.5 MILLIGRAM (1 CAPSULE BY MOUTH ONCE DAILY)
     Dates: start: 20231212
  28. EMVERM [Concomitant]
     Active Substance: MEBENDAZOLE
     Dosage: 100 MILLIGRAM (1 TABLET DAILY)
     Dates: start: 20230407
  29. ESOMEPRAZOLE MAGNESIUM [Concomitant]
     Active Substance: ESOMEPRAZOLE MAGNESIUM
     Dosage: 40 MILLIGRAM, BY MOUTH DAILY
     Dates: start: 20230717
  30. FUROSEMIDE [Concomitant]
     Active Substance: FUROSEMIDE
     Dosage: 20 MILLIGRAM (TAKE 1-2 TABLETS BY MOUTH DAILY)
     Dates: start: 20231227
  31. FUROSEMIDE [Concomitant]
     Active Substance: FUROSEMIDE
     Dosage: 40 MILLIGRAM (TAKE 1 TABLET BY MOUTH ONCE DAILY)
     Dates: start: 20240303
  32. HYDROXYZINE PAMOATE [Concomitant]
     Active Substance: HYDROXYZINE PAMOATE
     Indication: Anxiety
     Dosage: 25 MILLIGRAM (1 CAPSULE BY MOUTH 3 TIMES A DAY IF NEEDED)
     Dates: start: 20240223
  33. LISINOPRIL [Concomitant]
     Active Substance: LISINOPRIL
     Dosage: 10 MILLIGRAM (BY MOUTH, ONCE DAILY)
     Dates: start: 20230811
  34. LISINOPRIL [Concomitant]
     Active Substance: LISINOPRIL
     Dosage: 5 MILLIGRAM (1 TABLET DAILY)
     Dates: start: 20231216
  35. DIPHENHYDRAMINE HYDROCHLORIDE\LIDOCAINE HYDROCHLORIDE\NYSTATIN [Concomitant]
     Active Substance: DIPHENHYDRAMINE HYDROCHLORIDE\LIDOCAINE HYDROCHLORIDE\NYSTATIN
     Dosage: BLM 280 MILLILITER (15 ML BY MOUTH EVERY 6 HOURS IF NEEDED)
     Dates: start: 20230131
  36. DIPHENHYDRAMINE HYDROCHLORIDE\LIDOCAINE HYDROCHLORIDE\NYSTATIN [Concomitant]
     Active Substance: DIPHENHYDRAMINE HYDROCHLORIDE\LIDOCAINE HYDROCHLORIDE\NYSTATIN
     Dosage: MEDIACID (1 TEASPOONFUL BEFORE MEALS)
     Dates: start: 20231201
  37. MIRTAZAPINE [Concomitant]
     Active Substance: MIRTAZAPINE
     Dosage: 15 MILLIGRAM, 1 TABLET BY MOUTH AT BEDTIME
     Dates: start: 20230624
  38. MIRTAZAPINE [Concomitant]
     Active Substance: MIRTAZAPINE
     Dosage: 7.5 MILLIGRAM, 1 TABLET BY MOUTH AT BEDTIME
     Dates: start: 20221216
  39. MUPIROCIN [Concomitant]
     Active Substance: MUPIROCIN
     Dosage: 2% (APPLY THIN LAYER TO AFFECTED AREA ONCE DAILY FOR 10 DAYS)
     Dates: start: 20230719
  40. NEOMYCIN AND POLYMYXIN B SULFATES AND HYDROCORTISONE [Concomitant]
     Active Substance: HYDROCORTISONE\NEOMYCIN SULFATE\POLYMYXIN B SULFATE
     Dosage: 3.5 MG,10000UNIT/ML,1% EAR DROPS, SUSPENSION
     Dates: start: 20230719
  41. SULFAMETHOXAZOLE AND TRIMETHOPRIM [Concomitant]
     Active Substance: SULFAMETHOXAZOLE\TRIMETHOPRIM
     Dosage: 800 MG-160 MG (1 TABLET BY MOUTH TWICE A DAY)
     Dates: start: 20231227
  42. VENLAFAXINE [Concomitant]
     Active Substance: VENLAFAXINE HYDROCHLORIDE
     Dosage: 150 MILLIGRAM (1 CAPSULE BY MOUTH ONCE DAILY)
     Dates: start: 20230619
  43. VENLAFAXINE [Concomitant]
     Active Substance: VENLAFAXINE HYDROCHLORIDE
     Dosage: 75 MILLIGRAM (1 CAPSULE BY MOUTH ONCE DAILY)
     Dates: start: 20230720

REACTIONS (5)
  - Cataract [Not Recovered/Not Resolved]
  - Dizziness postural [Unknown]
  - Vision blurred [Not Recovered/Not Resolved]
  - Product dose omission issue [Not Recovered/Not Resolved]
  - Bacterial gingivitis [Not Recovered/Not Resolved]
